FAERS Safety Report 6060955-9 (Version None)
Quarter: 2009Q1

REPORT INFORMATION
  Report Type: 
  Country: None (occurrence: None)
  Receive Date: 20090202
  Receipt Date: 20090120
  Transmission Date: 20090719
  Serious: Yes (Other)
  Sender: FDA-Public Use
  Company Number: US-ROCHE-609740

PATIENT
  Sex: Male

DRUGS (3)
  1. PEG-INTERFERON A-2A (RO 25-8310) [Suspect]
     Indication: HEPATITIS C
     Dosage: PRE-FILLED SYRINGES
     Route: 065
     Dates: start: 20081214
  2. RIBAPAK [Suspect]
     Indication: HEPATITIS C
     Route: 065
  3. RIBAPAK [Suspect]
     Dosage: DOSE REDUCED
     Route: 065
     Dates: start: 20090122

REACTIONS (6)
  - ANGER [None]
  - ANOREXIA [None]
  - DEPRESSION [None]
  - FATIGUE [None]
  - PARANOIA [None]
  - RED BLOOD CELL COUNT DECREASED [None]
